FAERS Safety Report 24592061 (Version 1)
Quarter: 2024Q4

REPORT INFORMATION
  Report Type: Report from Study
  Country: BR (occurrence: BR)
  Receive Date: 20241108
  Receipt Date: 20241108
  Transmission Date: 20250114
  Serious: Yes (Hospitalization, Other)
  Sender: SANOFI AVENTIS
  Company Number: BR-SA-SAC20240517000900

PATIENT
  Age: 67 Year
  Sex: Male
  Weight: 88 kg

DRUGS (10)
  1. DOCETAXEL [Suspect]
     Active Substance: DOCETAXEL
     Indication: Non-small cell lung cancer
     Dosage: 75 MG/M2, Q3W
     Route: 042
     Dates: start: 20240321
  2. DOCETAXEL [Suspect]
     Active Substance: DOCETAXEL
     Dosage: 156.45 MG, Q3W
     Route: 042
     Dates: start: 20240321
  3. ALINIA [Concomitant]
     Active Substance: NITAZOXANIDE
     Indication: Emphysema
     Dosage: 1 DF, BID
     Route: 055
     Dates: start: 20240202
  4. LEVETIRACETAM [Concomitant]
     Active Substance: LEVETIRACETAM
     Indication: Seizure
     Dosage: 500 MG, TID
     Dates: start: 20240216
  5. FOLIC ACID [Concomitant]
     Active Substance: FOLIC ACID
     Indication: Chemotherapy side effect prophylaxis
     Dosage: 5 MG, CONT
     Dates: start: 20230327
  6. PHENYTOIN [Concomitant]
     Active Substance: PHENYTOIN
     Indication: Seizure
     Dosage: 100 MG, Q8H
     Dates: start: 202301
  7. DEXAMETHASONE [Concomitant]
     Active Substance: DEXAMETHASONE
     Indication: Seizure
     Dosage: 4 MG, QD
     Dates: start: 202401
  8. MAGNESIUM OXIDE [Concomitant]
     Active Substance: MAGNESIUM OXIDE
     Indication: Hypomagnesaemia
     Dosage: 300 MG, BID
     Dates: start: 20240322
  9. CITONEURIN [CYANOCOBALAMIN;PYRIDOXINE HYDROCHLORIDE;THIAMINE HYDROCHLO [Concomitant]
     Indication: Prophylaxis
     Dosage: 1 DF, Q8W
     Dates: start: 20230227
  10. DIPYRONE [Concomitant]
     Active Substance: DIPYRONE
     Indication: Cancer pain
     Dosage: 40 DROP, QD
     Dates: start: 2023

REACTIONS (2)
  - Headache [Recovered/Resolved]
  - Febrile neutropenia [Recovered/Resolved]

NARRATIVE: CASE EVENT DATE: 20240326
